FAERS Safety Report 4313248-1 (Version None)
Quarter: 2004Q1

REPORT INFORMATION
  Report Type: 
  Country: None (occurrence: None)
  Receive Date: 20040304
  Receipt Date: 20040225
  Transmission Date: 20041129
  Serious: No
  Sender: FDA-Public Use
  Company Number: 04-000139

PATIENT
  Age: 61 Year
  Sex: Female
  Weight: 70.7 kg

DRUGS (2)
  1. FEMRING (ESTRADIOL ACETATE) VAGINAL RING,  0.05MG [Suspect]
     Indication: MENOPAUSAL SYMPTOMS
     Dosage: 0.05 MG, QD, VAGINAL
     Route: 067
     Dates: start: 20030601
  2. LIPITOR [Concomitant]

REACTIONS (3)
  - COMPLICATION OF DEVICE REMOVAL [None]
  - GRANULOMA [None]
  - VAGINAL DISORDER [None]
